FAERS Safety Report 6685874-6 (Version None)
Quarter: 2010Q2

REPORT INFORMATION
  Report Type: 
  Country: None (occurrence: None)
  Receive Date: 20100415
  Receipt Date: 20100415
  Transmission Date: 20101027
  Serious: Yes (Life-Threatening, Hospitalization)
  Sender: FDA-Public Use
  Company Number: None

PATIENT
  Sex: Female
  Weight: 63.6 kg

DRUGS (1)
  1. CYMBALTA [Suspect]
     Indication: DEPRESSION
     Dosage: ONE TABLET DAILY PO
     Route: 048
     Dates: start: 20100409, end: 20100412

REACTIONS (2)
  - CHEST PAIN [None]
  - HEPATIC ENZYME INCREASED [None]
